FAERS Safety Report 6084229-5 (Version None)
Quarter: 2009Q1

REPORT INFORMATION
  Report Type: 
  Country: None (occurrence: None)
  Receive Date: 20090219
  Receipt Date: 20090212
  Transmission Date: 20090719
  Serious: Yes (Hospitalization, Other)
  Sender: FDA-Public Use
  Company Number: BR-ROCHE-614298

PATIENT
  Sex: Female
  Weight: 85 kg

DRUGS (7)
  1. RIVOTRIL [Suspect]
     Indication: INSOMNIA
     Route: 048
     Dates: start: 20010101, end: 20090129
  2. RIVOTRIL [Suspect]
     Route: 048
     Dates: start: 20090203
  3. DORMONID [Suspect]
     Indication: INSOMNIA
     Route: 048
     Dates: start: 20090130, end: 20090202
  4. FENOBARBITAL [Concomitant]
     Route: 048
     Dates: start: 20010101
  5. LABIRIN [Concomitant]
     Indication: VERTIGO
     Route: 048
     Dates: start: 20080813
  6. HYDROCHLOROTHIAZIDE [Concomitant]
     Dosage: TAKEN 0.5 TABLET DAILY.
     Route: 048
     Dates: start: 20080101
  7. SERTRALINE [Concomitant]
     Indication: DEPRESSION
     Route: 048
     Dates: start: 20060101

REACTIONS (11)
  - ABDOMINAL PAIN UPPER [None]
  - AMNESIA [None]
  - CEREBRAL ATROPHY [None]
  - CEREBRAL ISCHAEMIA [None]
  - CONFUSIONAL STATE [None]
  - DRUG INEFFECTIVE [None]
  - FACIAL BONES FRACTURE [None]
  - FALL [None]
  - HYPERTENSION [None]
  - HYPOTHYROIDISM [None]
  - SKIN LACERATION [None]
